FAERS Safety Report 4949997-1 (Version None)
Quarter: 2006Q1

REPORT INFORMATION
  Report Type: 
  Country: None (occurrence: None)
  Receive Date: 20060316
  Receipt Date: 20060306
  Transmission Date: 20060701
  Serious: Yes (Hospitalization)
  Sender: FDA-Public Use
  Company Number: 2006017332

PATIENT
  Age: 21 Year
  Sex: Female
  Weight: 53.8 kg

DRUGS (5)
  1. AZITHROMYCIN [Suspect]
     Indication: GYNAECOLOGICAL CHLAMYDIA INFECTION
     Dosage: 1000 MG (1 IN 1 D), ORAL
     Route: 048
     Dates: start: 20060126, end: 20060126
  2. DACTIL (PIPERIDOLATE HYDROCHLORIDE) [Concomitant]
  3. OKINAZOLE (OXICONAZOLE NITRATE) [Concomitant]
  4. ASTAT (LANOCONAZOLE) [Concomitant]
  5. BLUTAL (CHONDROITIN SULFATE SODIUM, FERRIC CHLORIDE) [Concomitant]

REACTIONS (11)
  - ABDOMINAL DISTENSION [None]
  - DIFFICULTY IN WALKING [None]
  - DRUG ERUPTION [None]
  - DRUG EXPOSURE DURING PREGNANCY [None]
  - ERYTHEMA [None]
  - FEELING HOT [None]
  - OEDEMA MUCOSAL [None]
  - PRURITUS [None]
  - SWELLING FACE [None]
  - URTICARIA [None]
  - VULVAL OEDEMA [None]
